FAERS Safety Report 4445864-0 (Version None)
Quarter: 2004Q3

REPORT INFORMATION
  Report Type: 
  Country: None (occurrence: None)
  Receive Date: 20040903
  Receipt Date: 20040826
  Transmission Date: 20050211
  Serious: Yes (Hospitalization, Other)
  Sender: FDA-Public Use
  Company Number: HQWYE615326AUG04

PATIENT
  Age: 20 Year
  Sex: Female

DRUGS (26)
  1. ZOSYN [Suspect]
     Indication: ABDOMINAL INFECTION
     Dosage: ONE DOSE AT 3.75 G, INTRAVENOUS
     Route: 042
     Dates: start: 20011112, end: 20011112
  2. DEMEROL [Concomitant]
  3. TYELENOL (PARACETAMOL) [Concomitant]
  4. TORADOL [Concomitant]
  5. ZOFRAN [Concomitant]
  6. LACTATED RINGER'S (CALCIUM CHLORIDE DIHYDRATE/POTASSIUM CHLORIDE/SODIU [Concomitant]
  7. FENTANYL [Concomitant]
  8. DESFLURANE (DESFLURANTE) [Concomitant]
  9. INAPSINE [Concomitant]
  10. PEPCIDE (FAMOTIDINE) [Concomitant]
  11. TIMENTIN [Concomitant]
  12. DIRIVAN (PROPOFOL) [Concomitant]
  13. NESOSTIGMINE (NEOSTIGMINE) [Concomitant]
  14. GLYCOPYRONIUM BROMIDE (GLYCOPYRONIUM BROMIDE) [Concomitant]
  15. VERSED [Concomitant]
  16. AMPICILLIN [Concomitant]
  17. CLINDAMYCIN HCL [Concomitant]
  18. GENTAMICIN [Concomitant]
  19. TEQUIN [Concomitant]
  20. CEFOXITIN (CEFOXITIN) [Concomitant]
  21. DOXYCYCLINE [Concomitant]
  22. NIMBEX (CISATRACURUM BESILATE) [Concomitant]
  23. ZEMURON [Concomitant]
  24. DESFLURANE (DESFLURANE) [Concomitant]
  25. MORPHINE SULFATE [Concomitant]
  26. DEXTROSE AND SODIUM CHLORIDE (GLUCOSE/SODIUM CHLORIDE) [Concomitant]

REACTIONS (3)
  - ACUTE RESPIRATORY DISTRESS SYNDROME [None]
  - AGITATION [None]
  - HYPERSENSITIVITY [None]
